FAERS Safety Report 17652661 (Version 3)
Quarter: 2020Q2

REPORT INFORMATION
  Report Type: Spontaneous
  Country: US (occurrence: US)
  Receive Date: 20200409
  Receipt Date: 20200611
  Transmission Date: 20200713
  Serious: No
  Sender: FDA-Public Use
  Company Number: US-PFIZER INC-2019361252

PATIENT
  Age: 61 Year
  Sex: Male
  Weight: 91.63 kg

DRUGS (3)
  1. DILANTIN [Suspect]
     Active Substance: PHENYTOIN
     Indication: SEIZURE
     Dosage: UNK
     Dates: start: 2015
  2. DILANTIN [Suspect]
     Active Substance: PHENYTOIN
     Dosage: 500 MG, DAILY (100 MG ER CAPSULE, 1 CAPSULE BY MOUTH FIVE TIMES A DAY)
     Route: 048
     Dates: start: 20200605
  3. DILANTIN [Suspect]
     Active Substance: PHENYTOIN
     Dosage: 100 MG, 1 CAPSULE 5 TIMES A DAY
     Route: 048
     Dates: start: 2016

REACTIONS (1)
  - Anticonvulsant drug level above therapeutic [Unknown]

NARRATIVE: CASE EVENT DATE: 20200203
